FAERS Safety Report 10748091 (Version 2)
Quarter: 2015Q2

REPORT INFORMATION
  Report Type: Spontaneous
  Country: CN (occurrence: CN)
  Receive Date: 20150129
  Receipt Date: 20150415
  Transmission Date: 20150821
  Serious: Yes (Other)
  Sender: FDA-Public Use
  Company Number: CN-JNJFOC-20150115614

PATIENT
  Age: 11 Year
  Sex: Female

DRUGS (2)
  1. TOPAMAX [Suspect]
     Active Substance: TOPIRAMATE
     Indication: SEIZURE
     Route: 048
     Dates: start: 201410
  2. TOPAMAX [Suspect]
     Active Substance: TOPIRAMATE
     Indication: SEIZURE
     Dosage: 25X60 MG
     Route: 048
     Dates: start: 201409, end: 201410

REACTIONS (4)
  - Memory impairment [Not Recovered/Not Resolved]
  - Educational problem [Not Recovered/Not Resolved]
  - Seizure [Unknown]
  - Bradyphrenia [Not Recovered/Not Resolved]

NARRATIVE: CASE EVENT DATE: 201411
